FAERS Safety Report 4269651-1 (Version None)
Quarter: 2004Q1

REPORT INFORMATION
  Report Type: 
  Country: None (occurrence: None)
  Receive Date: 20040112
  Receipt Date: 20031230
  Transmission Date: 20041129
  Serious: Yes (Hospitalization)
  Sender: FDA-Public Use
  Company Number: 200315001FR

PATIENT
  Age: 51 Year
  Sex: Female
  Weight: 59 kg

DRUGS (3)
  1. GLIMEPIRIDE [Suspect]
     Indication: DIABETES MELLITUS NON-INSULIN-DEPENDENT
     Dosage: 1 U/DAY PO
     Route: 048
     Dates: start: 20031103
  2. INSULIN (INSULIN NOVO) [Suspect]
     Dosage: SC
     Route: 058
     Dates: start: 20031101, end: 20031104
  3. XANAX [Suspect]
     Dosage: PO
     Route: 048
     Dates: start: 20031102, end: 20031110

REACTIONS (4)
  - BLOOD BILIRUBIN INCREASED [None]
  - BLOOD BILIRUBIN UNCONJUGATED INCREASED [None]
  - GLUCOSE-6-PHOSPHATE DEHYDROGENASE DEFICIENCY [None]
  - HAEMOGLOBIN DECREASED [None]
